FAERS Safety Report 9305588 (Version 2)
Quarter: 2013Q1

REPORT INFORMATION
  Report Type: Spontaneous
  Country: AT (occurrence: None)
  Receive Date: 20130104
  Receipt Date: 20130204
  Transmission Date: 20140127
  Serious: Yes (Life-Threatening, Hospitalization, Other)
  Sender: FDA-Public Use
  Company Number: 2011DEPAT00434

PATIENT
  Age: 58 Year
  Sex: Male
  Weight: 88 kg

DRUGS (12)
  1. DEPOCYTE [Suspect]
     Indication: METASTASES TO MENINGES
     Dosage: 50MG INTRATHECAL
     Route: 037
     Dates: start: 20111116, end: 20111116
  2. HYDAL (HYDROMORPHONE HYDROCHLORIDE) [Concomitant]
  3. PANTOLOC CONTROL (PANTOPRAZOLE SODIUM SESQUIHYDRATE) [Concomitant]
  4. MYCOSTATIN (NYSTATIN) [Concomitant]
  5. DIPIDOLOR (PIRITRAMIDE) [Concomitant]
  6. LOVENOX (ENOXAPARIN SODIUM) [Concomitant]
  7. NAVOBAN (TROPISETRON HYDROCHLORIDE) [Concomitant]
  8. KLYSMOL (SODIUM PHOSPHATE DIBASIC (HEPATHYDRATE), SODIUM PHOSPHATE MONOBASIC (MONOHYDRATE)) [Concomitant]
  9. STRUCTROKABIVEN PERIFEER [Concomitant]
  10. FOLSAN (FOLIC ACID) [Concomitant]
  11. SERACTIL (DEXIBUPROFEN) [Concomitant]
  12. CAL D VITA (CALCIUM CARBONATE, COLECALCIFEROL) [Concomitant]

REACTIONS (12)
  - Altered state of consciousness [None]
  - Posture abnormal [None]
  - Apraxia [None]
  - Speech disorder [None]
  - Hemiparesis [None]
  - Pyrexia [None]
  - Arachnoiditis [None]
  - Hallucination [None]
  - General physical health deterioration [None]
  - Restlessness [None]
  - Disorientation [None]
  - Vomiting [None]
